FAERS Safety Report 6361042-2 (Version None)
Quarter: 2009Q3

REPORT INFORMATION
  Report Type: 
  Country: None (occurrence: None)
  Receive Date: 20090918
  Receipt Date: 20090727
  Transmission Date: 20100115
  Serious: No
  Sender: FDA-Public Use
  Company Number: US-BAYER-200928240NA

PATIENT
  Age: 30 Year
  Sex: Female
  Weight: 68 kg

DRUGS (2)
  1. MIRENA [Suspect]
     Indication: CONTRACEPTION
     Dosage: CONTINUOUS
     Route: 015
     Dates: start: 20090501
  2. PAXIL [Concomitant]

REACTIONS (3)
  - BREAST TENDERNESS [None]
  - HOT FLUSH [None]
  - NAUSEA [None]
